FAERS Safety Report 5372415-9 (Version None)
Quarter: 2007Q2

REPORT INFORMATION
  Report Type: 
  Country: None (occurrence: None)
  Receive Date: 20070627
  Receipt Date: 20070508
  Transmission Date: 20071010
  Serious: Yes (Hospitalization)
  Sender: FDA-Public Use
  Company Number: US-BRISTOL-MYERS SQUIBB COMPANY-13690029

PATIENT
  Age: 59 Year
  Sex: Female
  Weight: 56 kg

DRUGS (16)
  1. SPRYCEL [Suspect]
     Indication: ACUTE LYMPHOCYTIC LEUKAEMIA
     Route: 048
     Dates: start: 20060901, end: 20070201
  2. COTRIM [Concomitant]
  3. OMEPRAZOLE [Concomitant]
  4. ACYCLOVIR [Concomitant]
  5. DIGOXIN [Concomitant]
  6. LEVOFLOXACIN [Concomitant]
  7. VANCOMYCIN HCL [Concomitant]
  8. METOPROLOL SUCCINATE [Concomitant]
  9. ENOXAPARIN SODIUM [Concomitant]
  10. BUDESONIDE [Concomitant]
  11. LISINOPRIL [Concomitant]
  12. SERTRALINE HYDROCHLORIDE [Concomitant]
  13. CALCIUM CARBONATE [Concomitant]
  14. NYSTATIN [Concomitant]
  15. EPOGEN [Concomitant]
  16. LOPERAMIDE HCL [Concomitant]

REACTIONS (2)
  - LUNG INFILTRATION [None]
  - PYREXIA [None]
